FAERS Safety Report 9354693 (Version 2)
Quarter: 2013Q3

REPORT INFORMATION
  Report Type: Report from Study
  Country: DE (occurrence: DE)
  Receive Date: 20130619
  Receipt Date: 20130703
  Transmission Date: 20140515
  Serious: Yes (Death, Hospitalization)
  Sender: FDA-Public Use
  Company Number: DE-009507513-1101DEU00012

PATIENT
  Age: 20 Year
  Sex: Female
  Weight: 59 kg

DRUGS (8)
  1. MK-0683 [Suspect]
     Indication: SARCOMA METASTATIC
     Dosage: 400 MG, QD
     Route: 048
     Dates: start: 20101209, end: 201101
  2. HYDROMORPHONE [Concomitant]
     Indication: PAIN
     Dosage: 48 MG, UNK
     Route: 048
     Dates: start: 201011
  3. PALLADON [Concomitant]
     Indication: PAIN
     Dosage: 2.6 MG, PRN
     Route: 048
     Dates: start: 200912, end: 20110103
  4. FENTANYL [Concomitant]
     Indication: PAIN
     Dosage: 400 ?G, QD
     Route: 061
     Dates: start: 201011
  5. SYNEUDON [Concomitant]
     Indication: INSOMNIA
     Dosage: 0.25 MG, UNK
     Route: 048
     Dates: start: 201011
  6. NOVAMINSULFON [Concomitant]
     Indication: PAIN
     Dosage: 2 G, UNK
     Route: 048
     Dates: start: 200912
  7. PANTOPRAZOLE [Concomitant]
     Indication: GASTRITIS PROPHYLAXIS
     Dosage: 40 MG, UNK
     Route: 048
     Dates: start: 200912
  8. ONDANSETRON [Concomitant]
     Indication: NAUSEA
     Dosage: 4 MG, PRN
     Route: 048
     Dates: start: 200912

REACTIONS (4)
  - Respiratory failure [Fatal]
  - Pain [Recovered/Resolved]
  - Pneumonia [Fatal]
  - Pulmonary embolism [Fatal]
